FAERS Safety Report 5291419-8 (Version None)
Quarter: 2007Q2

REPORT INFORMATION
  Report Type: 
  Country: None (occurrence: None)
  Receive Date: 20070402
  Receipt Date: 20070319
  Transmission Date: 20071010
  Serious: Yes (Hospitalization)
  Sender: FDA-Public Use
  Company Number: SP-2007-003542

PATIENT
  Age: 56 Year
  Sex: Male

DRUGS (6)
  1. OLMETEC [Suspect]
     Indication: HYPERTENSION
     Dates: start: 20061025, end: 20070124
  2. BISOPRODOL FUMARATE [Concomitant]
  3. MEDIATOR [Concomitant]
  4. FOLFOX-4 [Concomitant]
  5. SOLU-MEDROL [Concomitant]
  6. KYTRIL [Concomitant]

REACTIONS (8)
  - CYSTITIS [None]
  - DIARRHOEA [None]
  - DYSPEPSIA [None]
  - LABILE BLOOD PRESSURE [None]
  - RENAL FAILURE ACUTE [None]
  - URINARY TRACT INFECTION ENTEROCOCCAL [None]
  - VOMITING [None]
  - WEIGHT INCREASED [None]
